FAERS Safety Report 6730304-9 (Version None)
Quarter: 2010Q2

REPORT INFORMATION
  Report Type: 
  Country: None (occurrence: None)
  Receive Date: 20100513
  Receipt Date: 20100428
  Transmission Date: 20101027
  Serious: Yes (Other)
  Sender: FDA-Public Use
  Company Number: AUR-APL-2010-01232

PATIENT
  Age: 51 Year
  Sex: Female
  Weight: 83.9154 kg

DRUGS (4)
  1. LEVETIRACETAM [Suspect]
     Indication: GRAND MAL CONVULSION
     Dates: start: 20100301
  2. DILANTIN [Suspect]
     Indication: GRAND MAL CONVULSION
     Dosage: 400MG, DAILY;
  3. KEPPRA [Suspect]
     Indication: GRAND MAL CONVULSION
     Dosage: 1500MG, BID
     Dates: start: 20100412
  4. PLAVIX [Suspect]
     Indication: CARDIAC DISORDER
     Dates: start: 20100101

REACTIONS (9)
  - BLOOD CHOLESTEROL INCREASED [None]
  - CARDIAC DISORDER [None]
  - CONVULSION [None]
  - DRUG INEFFECTIVE [None]
  - DRUG INTERACTION [None]
  - DRUG TOXICITY [None]
  - DYSKINESIA [None]
  - TOOTH LOSS [None]
  - VASCULAR PSEUDOANEURYSM [None]
